FAERS Safety Report 24724686 (Version 2)
Quarter: 2024Q4

REPORT INFORMATION
  Report Type: Spontaneous
  Country: AU (occurrence: AU)
  Receive Date: 20241212
  Receipt Date: 20241219
  Transmission Date: 20250115
  Serious: Yes (Other)
  Sender: ALEXION PHARMACEUTICALS
  Company Number: AU-AstraZeneca-CH-00764621A

PATIENT
  Age: 70 Year

DRUGS (6)
  1. IMFINZI [Suspect]
     Active Substance: DURVALUMAB
     Route: 065
  2. IMFINZI [Suspect]
     Active Substance: DURVALUMAB
     Route: 065
  3. IMFINZI [Suspect]
     Active Substance: DURVALUMAB
     Route: 065
  4. IMFINZI [Suspect]
     Active Substance: DURVALUMAB
     Route: 065
  5. GEMCITABINE [Concomitant]
     Active Substance: GEMCITABINE
  6. CISPLATIN [Concomitant]
     Active Substance: CISPLATIN

REACTIONS (8)
  - Malignant neoplasm progression [Unknown]
  - Neuroendocrine carcinoma [Unknown]
  - Gallbladder adenocarcinoma [Unknown]
  - Metastases to liver [Unknown]
  - Abdominal mass [Unknown]
  - Drug resistance [Unknown]
  - Fatigue [Unknown]
  - Diarrhoea [Unknown]
